FAERS Safety Report 21826253 (Version 1)
Quarter: 2023Q1

REPORT INFORMATION
  Report Type: Spontaneous
  Country: CA (occurrence: None)
  Receive Date: 20230106
  Receipt Date: 20230106
  Transmission Date: 20230418
  Serious: Yes (Other)
  Sender: FDA-Public Use
  Company Number: CA-ROCHE-3256135

PATIENT
  Age: 54 Year
  Sex: Female

DRUGS (17)
  1. TRASTUZUMAB [Suspect]
     Active Substance: TRASTUZUMAB
     Indication: HER2 positive breast cancer
     Route: 065
  2. ADO-TRASTUZUMAB EMTANSINE [Suspect]
     Active Substance: ADO-TRASTUZUMAB EMTANSINE
     Indication: HER2 positive breast cancer
     Route: 065
  3. ADO-TRASTUZUMAB EMTANSINE [Suspect]
     Active Substance: ADO-TRASTUZUMAB EMTANSINE
     Indication: Breast cancer metastatic
  4. VINORELBINE [Suspect]
     Active Substance: VINORELBINE TARTRATE
     Indication: HER2 positive breast cancer
     Route: 065
  5. VINORELBINE [Suspect]
     Active Substance: VINORELBINE TARTRATE
     Indication: Breast cancer metastatic
  6. DOCETAXEL [Suspect]
     Active Substance: DOCETAXEL
     Indication: HER2 positive breast cancer
     Route: 065
  7. ALDESLEUKIN [Suspect]
     Active Substance: ALDESLEUKIN
     Indication: HER2 positive breast cancer
     Route: 026
  8. ALDESLEUKIN [Suspect]
     Active Substance: ALDESLEUKIN
     Indication: Breast cancer metastatic
  9. ALDESLEUKIN [Suspect]
     Active Substance: ALDESLEUKIN
     Indication: HER2 positive breast cancer
     Route: 065
  10. ALDESLEUKIN [Suspect]
     Active Substance: ALDESLEUKIN
     Indication: Breast cancer metastatic
  11. CAPECITABINE [Concomitant]
     Active Substance: CAPECITABINE
     Indication: HER2 positive breast cancer
     Route: 065
  12. IMIQUIMOD [Concomitant]
     Active Substance: IMIQUIMOD
     Indication: HER2 positive breast cancer
     Route: 061
  13. IMIQUIMOD [Concomitant]
     Active Substance: IMIQUIMOD
     Indication: Breast cancer metastatic
  14. IMIQUIMOD [Concomitant]
     Active Substance: IMIQUIMOD
     Indication: HER2 positive breast cancer
  15. IMIQUIMOD [Concomitant]
     Active Substance: IMIQUIMOD
     Indication: Breast cancer metastatic
  16. PACLITAXEL [Concomitant]
     Active Substance: PACLITAXEL
     Indication: HER2 positive breast cancer
     Route: 065
  17. PACLITAXEL [Concomitant]
     Active Substance: PACLITAXEL
     Indication: Breast cancer metastatic

REACTIONS (6)
  - Cardiotoxicity [Recovered/Resolved]
  - Drug ineffective [Recovered/Resolved]
  - Ejection fraction decreased [Recovered/Resolved]
  - Fatigue [Recovered/Resolved]
  - Injection site erythema [Recovered/Resolved]
  - Pyrexia [Recovered/Resolved]
